FAERS Safety Report 21811245 (Version 2)
Quarter: 2023Q1

REPORT INFORMATION
  Report Type: Spontaneous
  Country: US (occurrence: US)
  Receive Date: 20230103
  Receipt Date: 20230317
  Transmission Date: 20230417
  Serious: Yes (Hospitalization)
  Sender: FDA-Public Use
  Company Number: US-MARINUS PHARMACEUTICALS, INC.-MAR2022000059

PATIENT
  Sex: Female

DRUGS (1)
  1. ZTALMY [Suspect]
     Active Substance: GANAXOLONE
     Indication: CDKL5 deficiency disorder
     Dosage: 5 MILLILITER, TID
     Route: 048
     Dates: start: 2022

REACTIONS (2)
  - Pneumonia aspiration [Unknown]
  - Product dose omission issue [Unknown]

NARRATIVE: CASE EVENT DATE: 20220101
